FAERS Safety Report 9030497 (Version 24)
Quarter: 2021Q3

REPORT INFORMATION
  Report Type: Other
  Country: CA (occurrence: CA)
  Receive Date: 20130122
  Receipt Date: 20210820
  Transmission Date: 20211014
  Serious: Yes (Hospitalization, Other)
  Sender: FDA-Public Use
  Company Number: CA-ROCHE-1125436

PATIENT
  Age: 41 Year
  Sex: Female
  Weight: 97.5 kg

DRUGS (13)
  1. LEUCOVORIN. [Concomitant]
     Active Substance: LEUCOVORIN
  2. ACTEMRA [Suspect]
     Active Substance: TOCILIZUMAB
     Indication: RHEUMATOID ARTHRITIS
     Dosage: FORMULATION?20 MG/ML (400 MG/20ML)  IN VIALS OF INTRAVENOUS TOCILIZUMAB.
     Route: 042
     Dates: start: 20120717, end: 20200512
  3. ACTEMRA [Suspect]
     Active Substance: TOCILIZUMAB
     Route: 042
     Dates: start: 20200811
  4. ZOPICLONE [Concomitant]
     Active Substance: ZOPICLONE
  5. TEMAZEPAM. [Concomitant]
     Active Substance: TEMAZEPAM
  6. CLONAZEPAM. [Concomitant]
     Active Substance: CLONAZEPAM
  7. CYMBALTA [Concomitant]
     Active Substance: DULOXETINE HYDROCHLORIDE
  8. TYLENOL [Concomitant]
     Active Substance: ACETAMINOPHEN
  9. CELEBREX [Concomitant]
     Active Substance: CELECOXIB
  10. VITAMIN B50 COMPLEX [Concomitant]
     Active Substance: BIOTIN\CALCIUM PANTOTHENATE\CHOLINE BITARTRATE\CYANOCOBALAMIN\FOLIC ACID\INOSITOL\NIACINAMIDE\PYRIDOXINE\RIBOFLAVIN\THIAMINE
  11. ACTEMRA [Suspect]
     Active Substance: TOCILIZUMAB
     Route: 042
     Dates: start: 20180501
  12. TRAZODONE [Concomitant]
     Active Substance: TRAZODONE HYDROCHLORIDE
  13. METHOTREXATE. [Concomitant]
     Active Substance: METHOTREXATE
     Route: 048

REACTIONS (37)
  - Pyrexia [Unknown]
  - Weight increased [Recovering/Resolving]
  - Blood pressure diastolic increased [Unknown]
  - Nasopharyngitis [Not Recovered/Not Resolved]
  - Flushing [Recovered/Resolved]
  - Anxiety [Unknown]
  - Heart rate increased [Unknown]
  - Nasopharyngitis [Unknown]
  - Insomnia [Unknown]
  - Stress [Unknown]
  - Pharyngeal swelling [Not Recovered/Not Resolved]
  - Pneumonia [Not Recovered/Not Resolved]
  - Blood pressure increased [Unknown]
  - Dizziness [Recovered/Resolved]
  - Illness [Unknown]
  - Chest discomfort [Recovered/Resolved]
  - Weight decreased [Unknown]
  - Fatigue [Not Recovered/Not Resolved]
  - Abdominal pain [Unknown]
  - Back pain [Not Recovered/Not Resolved]
  - Blood pressure increased [Unknown]
  - Pain in extremity [Not Recovered/Not Resolved]
  - Blood pressure fluctuation [Unknown]
  - Bronchitis [Recovered/Resolved]
  - Chest pain [Recovered/Resolved]
  - Hypotension [Unknown]
  - Appendix disorder [Unknown]
  - Thrombosis [Unknown]
  - Pain [Unknown]
  - Heart rate increased [Unknown]
  - Influenza [Recovered/Resolved]
  - Arthralgia [Not Recovered/Not Resolved]
  - Infusion related reaction [Unknown]
  - Pharyngitis streptococcal [Not Recovered/Not Resolved]
  - Fungal infection [Recovered/Resolved]
  - Suture insertion [Unknown]
  - Nausea [Recovering/Resolving]

NARRATIVE: CASE EVENT DATE: 201208
